FAERS Safety Report 11113810 (Version 3)
Quarter: 2016Q1

REPORT INFORMATION
  Report Type: Spontaneous
  Country: US (occurrence: US)
  Receive Date: 20150514
  Receipt Date: 20160120
  Transmission Date: 20160525
  Serious: Yes (Death)
  Sender: FDA-Public Use
  Company Number: US-009507513-1505USA005224

PATIENT
  Sex: Male
  Weight: 84.35 kg

DRUGS (21)
  1. LORAZEPAM. [Concomitant]
     Active Substance: LORAZEPAM
  2. EMEND [Suspect]
     Active Substance: APREPITANT
     Dosage: 80 MG ON DAY 3
     Route: 048
     Dates: start: 201501
  3. PROTONIX [Concomitant]
     Active Substance: PANTOPRAZOLE SODIUM
  4. MEGACE [Concomitant]
     Active Substance: MEGESTROL ACETATE
  5. OXYCODONE [Concomitant]
     Active Substance: OXYCODONE
  6. COMPAZINE [Concomitant]
     Active Substance: PROCHLORPERAZINE MALEATE
  7. FLOMAX [Concomitant]
     Active Substance: TAMSULOSIN HYDROCHLORIDE
  8. FLONASE [Concomitant]
     Active Substance: FLUTICASONE PROPIONATE
  9. LEVAQUIN [Concomitant]
     Active Substance: LEVOFLOXACIN
  10. METOPROLOL. [Concomitant]
     Active Substance: METOPROLOL
  11. PROMETHAZINE [Concomitant]
     Active Substance: PROMETHAZINE\PROMETHAZINE HYDROCHLORIDE
  12. SELENIUM SULFIDE. [Concomitant]
     Active Substance: SELENIUM SULFIDE
  13. ZOCOR [Concomitant]
     Active Substance: SIMVASTATIN
  14. XARELTO [Concomitant]
     Active Substance: RIVAROXABAN
  15. EMEND [Suspect]
     Active Substance: APREPITANT
     Indication: NAUSEA
     Dosage: TRIPACK, 125 MG ON DAY 1
     Route: 048
     Dates: start: 201501
  16. PEPCID [Concomitant]
     Active Substance: FAMOTIDINE
  17. ROPINIROLE. [Concomitant]
     Active Substance: ROPINIROLE
  18. BUPROPION HYDROCHLORIDE. [Concomitant]
     Active Substance: BUPROPION HYDROCHLORIDE
  19. PREDNISONE. [Concomitant]
     Active Substance: PREDNISONE
  20. EMEND [Suspect]
     Active Substance: APREPITANT
     Indication: VOMITING
     Dosage: 80 MG ON DAY 2
     Route: 048
     Dates: start: 201501
  21. ZOFRAN [Concomitant]
     Active Substance: ONDANSETRON HYDROCHLORIDE

REACTIONS (1)
  - Malignant neoplasm progression [Fatal]
